FAERS Safety Report 13126743 (Version 1)
Quarter: 2017Q1

REPORT INFORMATION
  Report Type: Spontaneous
  Country: US (occurrence: US)
  Receive Date: 20170118
  Receipt Date: 20170118
  Transmission Date: 20170428
  Serious: Yes (Other)
  Sender: FDA-Public Use
  Company Number: US-BAYER-2017-007146

PATIENT
  Sex: Female

DRUGS (1)
  1. CIPRO [Suspect]
     Active Substance: CIPROFLOXACIN HYDROCHLORIDE
     Indication: CYSTITIS
     Dosage: UNK

REACTIONS (12)
  - Musculoskeletal disorder [None]
  - Wrong technique in product usage process [None]
  - Cellulitis [None]
  - Hypoaesthesia [None]
  - Skin discolouration [None]
  - Tendon rupture [None]
  - Peripheral swelling [None]
  - Aphonia [None]
  - Gait disturbance [None]
  - Dysstasia [None]
  - Tremor [None]
  - Product difficult to swallow [None]
